FAERS Safety Report 5051089-0 (Version None)
Quarter: 2006Q3

REPORT INFORMATION
  Report Type: 
  Country: None (occurrence: None)
  Receive Date: 20060714
  Receipt Date: 20060705
  Transmission Date: 20061208
  Serious: Yes (Life-Threatening, Disabling, Other)
  Sender: FDA-Public Use
  Company Number: US-JNJFOC-20060503856

PATIENT
  Age: 64 Year
  Sex: Male
  Weight: 112.49 kg

DRUGS (1)
  1. REMICADE [Suspect]
     Indication: DRUG USE FOR UNKNOWN INDICATION
     Route: 042

REACTIONS (2)
  - MULTIPLE MYELOMA [None]
  - PROSTATE CANCER [None]
